FAERS Safety Report 25923214 (Version 1)
Quarter: 2025Q4

REPORT INFORMATION
  Report Type: Spontaneous
  Country: US (occurrence: US)
  Receive Date: 20251015
  Receipt Date: 20251015
  Transmission Date: 20260117
  Serious: No
  Sender: CHATTEM
  Company Number: US-OPELLA-2025OHG030215

PATIENT

DRUGS (1)
  1. ALLEGRA HIVES 24HR [Suspect]
     Active Substance: FEXOFENADINE HYDROCHLORIDE
     Indication: Product used for unknown indication
     Dosage: FOR 2 DAYS

REACTIONS (2)
  - Drug ineffective [Unknown]
  - No adverse event [Unknown]
